FAERS Safety Report 13472889 (Version 1)
Quarter: 2017Q2

REPORT INFORMATION
  Report Type: Spontaneous
  Country: SD (occurrence: SD)
  Receive Date: 20170424
  Receipt Date: 20170424
  Transmission Date: 20170830
  Serious: Yes (Other)
  Sender: FDA-Public Use
  Company Number: SD-PFIZER INC-2017174721

PATIENT
  Sex: Female

DRUGS (1)
  1. VIAGRA [Suspect]
     Active Substance: SILDENAFIL CITRATE
     Dosage: UNK

REACTIONS (5)
  - Presyncope [Unknown]
  - Hyperhidrosis [Unknown]
  - Tremor [Unknown]
  - Cold sweat [Unknown]
  - Intentional product misuse [Unknown]
